FAERS Safety Report 5031578-5 (Version None)
Quarter: 2006Q2

REPORT INFORMATION
  Report Type: 
  Country: None (occurrence: None)
  Receive Date: 20060616
  Receipt Date: 20060607
  Transmission Date: 20061013
  Serious: Yes (Other)
  Sender: FDA-Public Use
  Company Number: 2006-DE-02948GD

PATIENT
  Sex: Female

DRUGS (1)
  1. HYDROCHLOROTHIAZIDE [Suspect]
     Indication: NEPHROGENIC DIABETES INSIPIDUS
     Dosage: 3 MG/KG

REACTIONS (8)
  - BLADDER DISORDER [None]
  - DEHYDRATION [None]
  - HYPERNATRAEMIA [None]
  - REFUSAL OF TREATMENT BY PATIENT [None]
  - RENAL CELL CARCINOMA STAGE UNSPECIFIED [None]
  - STOMACH DISCOMFORT [None]
  - URETERIC DILATATION [None]
  - WEIGHT DECREASED [None]
